FAERS Safety Report 20852635 (Version 2)
Quarter: 2022Q2

REPORT INFORMATION
  Report Type: Spontaneous
  Country: IN (occurrence: IN)
  Receive Date: 20220520
  Receipt Date: 20220603
  Transmission Date: 20220721
  Serious: Yes (Other)
  Sender: FDA-Public Use
  Company Number: IN-MLMSERVICE-20220513-3516846-1

PATIENT
  Age: 52 Year
  Sex: Female

DRUGS (5)
  1. OXALIPLATIN [Suspect]
     Active Substance: OXALIPLATIN
     Indication: Rectal adenocarcinoma
     Dosage: 140 MG, ADMINISTERED AS A 6-H INFUSION OF A 21-DAY CYCLE
     Dates: start: 2020, end: 2020
  2. GRANISETRON [Concomitant]
     Active Substance: GRANISETRON
     Indication: Prophylaxis of nausea and vomiting
     Dosage: 1 MG
     Route: 040
     Dates: start: 2020, end: 2020
  3. CAPECITABINE [Concomitant]
     Active Substance: CAPECITABINE
     Indication: Rectal adenocarcinoma
     Dosage: 2000MG/M^2 PER DAY IN TWO DIVIDED DOSES FOR 14 DAYS OF A 21-DAY CYCLE
     Dates: start: 2020
  4. DEXAMETHASONE [Concomitant]
     Active Substance: DEXAMETHASONE
     Indication: Prophylaxis of nausea and vomiting
     Dosage: 8 MG
     Route: 040
     Dates: start: 2020, end: 2020
  5. PANTOPRAZOLE [Concomitant]
     Active Substance: PANTOPRAZOLE
     Indication: Prophylaxis
     Dosage: 40 MG
     Route: 040

REACTIONS (7)
  - Chemical burns of eye [Unknown]
  - Headache [Unknown]
  - Dizziness [Unknown]
  - Nausea [Unknown]
  - Paraesthesia [Unknown]
  - Dysaesthesia [Unknown]
  - Throat irritation [Unknown]

NARRATIVE: CASE EVENT DATE: 20200101
